FAERS Safety Report 23868229 (Version 2)
Quarter: 2024Q2

REPORT INFORMATION
  Report Type: Spontaneous
  Country: US (occurrence: US)
  Receive Date: 20240517
  Receipt Date: 20240521
  Transmission Date: 20240716
  Serious: Yes (Other)
  Sender: FDA-Public Use
  Company Number: US-MLMSERVICE-20240508-PI052533-00271-1

PATIENT
  Age: 20 Year
  Sex: Female

DRUGS (28)
  1. METHOTREXATE SODIUM [Suspect]
     Active Substance: METHOTREXATE SODIUM
     Indication: Prophylaxis
     Dosage: 15 MG, EVERY 2-4 WEEKS, THROUGHOUT INDUCTION AND CONSOLIDATION
     Route: 037
  2. VINCRISTINE SULFATE [Suspect]
     Active Substance: VINCRISTINE SULFATE
     Indication: Germ cell neoplasm
     Dosage: 2MG IV WEEKLY 1 CYCLE (28-DAY CYCLE)
     Route: 042
  3. VINCRISTINE SULFATE [Suspect]
     Active Substance: VINCRISTINE SULFATE
     Indication: Teratoma
  4. VINCRISTINE SULFATE [Suspect]
     Active Substance: VINCRISTINE SULFATE
     Indication: B precursor type acute leukaemia
  5. VINCRISTINE SULFATE [Suspect]
     Active Substance: VINCRISTINE SULFATE
     Indication: B-cell type acute leukaemia
  6. CYTARABINE [Suspect]
     Active Substance: CYTARABINE
     Indication: B precursor type acute leukaemia
     Dosage: 1 G/M2, SINGLE
     Route: 042
  7. CYTARABINE [Suspect]
     Active Substance: CYTARABINE
     Indication: B-cell type acute leukaemia
  8. PALBOCICLIB [Suspect]
     Active Substance: PALBOCICLIB
     Indication: Germ cell neoplasm
     Dosage: 100 MG PO DAYS 1-21 1 CYCLE (28-DAY CYCLE)
     Route: 048
  9. PALBOCICLIB [Suspect]
     Active Substance: PALBOCICLIB
     Indication: Teratoma
     Dosage: 75 MG, CYCLIC, DAYS 1-21, 1 CYCLE (28-DAY CYCLE)
     Route: 048
  10. PALBOCICLIB [Suspect]
     Active Substance: PALBOCICLIB
     Indication: B precursor type acute leukaemia
     Dosage: 75 MG, CYCLIC, DAYS 1-21, 2 CYCLE (28-DAY CYCLE)
     Route: 048
  11. PALBOCICLIB [Suspect]
     Active Substance: PALBOCICLIB
     Indication: B-cell type acute leukaemia
  12. ASPARAGINASE [Suspect]
     Active Substance: ASPARAGINASE
     Indication: Teratoma
     Dosage: 2500 UNITS/M2 IV DAY 4, 1 CYCLE (28-DAY CYCLE)
     Route: 042
  13. ASPARAGINASE [Suspect]
     Active Substance: ASPARAGINASE
     Indication: B precursor type acute leukaemia
  14. ASPARAGINASE [Suspect]
     Active Substance: ASPARAGINASE
     Indication: B-cell type acute leukaemia
  15. ASPARAGINASE [Suspect]
     Active Substance: ASPARAGINASE
     Indication: Germ cell neoplasm
  16. DEXAMETHASONE [Suspect]
     Active Substance: DEXAMETHASONE
     Indication: B precursor type acute leukaemia
     Dosage: 5 MG/M2, 2X/DAY
     Route: 042
  17. DEXAMETHASONE [Suspect]
     Active Substance: DEXAMETHASONE
     Indication: B-cell type acute leukaemia
     Dosage: 40 MG, SINGLE
     Route: 042
  18. DEXAMETHASONE [Suspect]
     Active Substance: DEXAMETHASONE
     Dosage: 12 MG, CYCLIC, DAYS 1-5, 1 CYCLE (28-DAY CYCLE)
     Route: 048
  19. DAUNORUBICIN [Suspect]
     Active Substance: DAUNORUBICIN
     Indication: B precursor type acute leukaemia
     Dosage: 25 MG/M2 IV WEEKLY, 1 CYCLE (28-DAY CYCLE)
     Route: 042
  20. DAUNORUBICIN [Suspect]
     Active Substance: DAUNORUBICIN
     Indication: B-cell type acute leukaemia
  21. DAUNORUBICIN [Suspect]
     Active Substance: DAUNORUBICIN
     Indication: Germ cell neoplasm
  22. DAUNORUBICIN [Suspect]
     Active Substance: DAUNORUBICIN
     Indication: Teratoma
  23. HYDROXYUREA [Suspect]
     Active Substance: HYDROXYUREA
     Indication: B-cell type acute leukaemia
     Dosage: 25 MG/KG, 2X/DAY
     Route: 048
  24. HYDROXYUREA [Suspect]
     Active Substance: HYDROXYUREA
     Indication: B precursor type acute leukaemia
  25. PREDNISONE [Suspect]
     Active Substance: PREDNISONE
     Indication: B-cell type acute leukaemia
     Dosage: 30 MG/M2 PO DAILY, 1 CYCLE (28-DAY CYCLE)
     Route: 048
  26. PREDNISONE [Suspect]
     Active Substance: PREDNISONE
     Indication: Teratoma
  27. PREDNISONE [Suspect]
     Active Substance: PREDNISONE
     Indication: B precursor type acute leukaemia
  28. PREDNISONE [Suspect]
     Active Substance: PREDNISONE
     Indication: Germ cell neoplasm

REACTIONS (5)
  - Thrombocytopenia [Unknown]
  - Neutropenia [Unknown]
  - Constipation [Unknown]
  - Vomiting [Unknown]
  - Nausea [Unknown]
